FAERS Safety Report 13923573 (Version 1)
Quarter: 2017Q3

REPORT INFORMATION
  Report Type: Spontaneous
  Country: US (occurrence: US)
  Receive Date: 20170831
  Receipt Date: 20170831
  Transmission Date: 20171127
  Serious: Yes (Other)
  Sender: FDA-Public Use
  Company Number: US-CONCORDIA PHARMACEUTICALS INC.-GSH201708-004877

PATIENT
  Age: 75 Year
  Sex: Female

DRUGS (2)
  1. DEXTROSE. [Suspect]
     Active Substance: DEXTROSE
     Route: 042
  2. DIGOXIN. [Suspect]
     Active Substance: DIGOXIN

REACTIONS (1)
  - Drug ineffective [Unknown]
